FAERS Safety Report 10706934 (Version 14)
Quarter: 2019Q1

REPORT INFORMATION
  Report Type: Spontaneous
  Country: US (occurrence: US)
  Receive Date: 20150113
  Receipt Date: 20190221
  Transmission Date: 20190417
  Serious: Yes (Hospitalization, Other)
  Sender: FDA-Public Use
  Company Number: US-PFIZER INC-2015006457

PATIENT
  Age: 91 Year
  Sex: Female
  Weight: 68 kg

DRUGS (13)
  1. REVATIO [Suspect]
     Active Substance: SILDENAFIL CITRATE
     Indication: PULMONARY HYPERTENSION
     Dosage: 20 MG, 3X/DAY
     Route: 048
     Dates: start: 2008
  2. PREDNISOLONE. [Suspect]
     Active Substance: PREDNISOLONE
     Indication: CORNEAL DISORDER
     Dosage: 1 GTT, 1X/DAY (1 DROP LEFT EYE ONLY IN MORNING)
  3. LABETALOL [Concomitant]
     Active Substance: LABETALOL\LABETALOL HYDROCHLORIDE
     Dosage: UNK, 2X/DAY
  4. LUMIGAN [Suspect]
     Active Substance: BIMATOPROST
     Dosage: 2.5 MG, 1X/DAY (AT BEDTIME)
  5. CLONIDINE. [Concomitant]
     Active Substance: CLONIDINE
     Dosage: UNK, 2X/DAY (0.1 2X A DAY)
  6. SIMVASTATIN. [Concomitant]
     Active Substance: SIMVASTATIN
     Dosage: UNK
     Dates: start: 2018
  7. AMLODIPINE [Concomitant]
     Active Substance: AMLODIPINE BESYLATE
     Dosage: 5 MG, 1X/DAY
  8. ENALAPRIL [Concomitant]
     Active Substance: ENALAPRIL
     Dosage: 1 DF, 2X/DAY
     Dates: start: 2018
  9. SIMVASTATIN. [Concomitant]
     Active Substance: SIMVASTATIN
     Dosage: UNK, 1X/DAY
     Dates: start: 201503
  10. REVATIO [Suspect]
     Active Substance: SILDENAFIL CITRATE
     Indication: DYSPNOEA
     Dosage: 20 MG, 3X/DAY
     Dates: start: 2009
  11. HYDROCHLOROTHIAZIDE. [Concomitant]
     Active Substance: HYDROCHLOROTHIAZIDE
     Dosage: UNK, 1X/DAY (25 IN ONE A DAY)
  12. TEMAZEPAM. [Suspect]
     Active Substance: TEMAZEPAM
     Dosage: UNK, 1X/DAY (7.5 ONCE A DAY 1 BEDTIME)
  13. ROPINIROLE. [Suspect]
     Active Substance: ROPINIROLE
     Dosage: 0.25 MG, 1X/DAY (1 AT BEDTIME)

REACTIONS (10)
  - Upper limb fracture [Not Recovered/Not Resolved]
  - Volvulus [Not Recovered/Not Resolved]
  - Clavicle fracture [Not Recovered/Not Resolved]
  - Intestinal obstruction [Not Recovered/Not Resolved]
  - Visual impairment [Not Recovered/Not Resolved]
  - Musculoskeletal stiffness [Not Recovered/Not Resolved]
  - Pain in extremity [Not Recovered/Not Resolved]
  - Gastrointestinal infection [Not Recovered/Not Resolved]
  - Fall [Not Recovered/Not Resolved]
  - Dyspnoea [Not Recovered/Not Resolved]

NARRATIVE: CASE EVENT DATE: 2013
